FAERS Safety Report 16901624 (Version 1)
Quarter: 2019Q4

REPORT INFORMATION
  Report Type: Other
  Country: DE (occurrence: DE)
  Receive Date: 20191010
  Receipt Date: 20191010
  Transmission Date: 20200122
  Serious: Yes (Life-Threatening, Hospitalization, Other)
  Sender: FDA-Public Use
  Company Number: DE-LUPIN PHARMACEUTICALS INC.-2019-06389

PATIENT
  Age: 56 Year
  Sex: Female
  Weight: 75 kg

DRUGS (5)
  1. LEVETIRACETAM. [Concomitant]
     Active Substance: LEVETIRACETAM
     Indication: EPILEPSY
     Dosage: 4 GRAM, QD, EVERY DAYS 2 SEPARATED DOSES
     Route: 065
  2. PREGABADOR [Concomitant]
     Active Substance: PREGABALIN
     Indication: PRODUCT USED FOR UNKNOWN INDICATION
     Dosage: 25 MILLIGRAM, UNK
     Route: 065
  3. VIMPAT [Concomitant]
     Active Substance: LACOSAMIDE
     Indication: EPILEPSY
     Dosage: 400 MILLIGRAM, QD, EVERY DAYS 2 SEPARATED DOSES
     Route: 065
  4. NITOMAN [Suspect]
     Active Substance: TETRABENAZINE
     Indication: ATAXIA
     Dosage: 25 MILLIGRAM, QD
     Route: 065
  5. FENTANYL. [Concomitant]
     Active Substance: FENTANYL
     Indication: PRODUCT USED FOR UNKNOWN INDICATION
     Dosage: 25 MICROGRAM, EVERY 72 HOURS
     Route: 065

REACTIONS (7)
  - Suicide attempt [Unknown]
  - Traumatic renal injury [Unknown]
  - Rhabdomyolysis [Unknown]
  - Chest injury [Unknown]
  - Pancreatic injury [Unknown]
  - Traumatic liver injury [Unknown]
  - Penetrating abdominal trauma [Unknown]

NARRATIVE: CASE EVENT DATE: 20190810
